FAERS Safety Report 12059350 (Version 2)
Quarter: 2016Q1

REPORT INFORMATION
  Report Type: Spontaneous
  Country: US (occurrence: US)
  Receive Date: 20160210
  Receipt Date: 20160303
  Transmission Date: 20160526
  Serious: No
  Sender: FDA-Public Use
  Company Number: US-PFIZER INC-2016072674

PATIENT
  Age: 55 Year
  Sex: Female
  Weight: 107 kg

DRUGS (5)
  1. LYRICA [Concomitant]
     Active Substance: PREGABALIN
     Indication: RHEUMATOID ARTHRITIS
     Dosage: 75 MG, 1X/DAY, AT BEDTIME
  2. LYRICA [Concomitant]
     Active Substance: PREGABALIN
     Indication: NEUROPATHY PERIPHERAL
  3. TRAMADOL. [Concomitant]
     Active Substance: TRAMADOL
     Indication: SOMNOLENCE
     Dosage: UNK
  4. XANAX [Suspect]
     Active Substance: ALPRAZOLAM
     Dosage: HALF OF ONE
     Dates: start: 2016
  5. LYRICA [Concomitant]
     Active Substance: PREGABALIN
     Indication: SJOGREN^S SYNDROME

REACTIONS (2)
  - Intentional underdose [Unknown]
  - Drug intolerance [Unknown]
